FAERS Safety Report 10064289 (Version 1)
Quarter: 2013Q4

REPORT INFORMATION
  Report Type: Spontaneous
  Country: FR (occurrence: None)
  Receive Date: 20131119
  Receipt Date: 20131119
  Transmission Date: 20140711
  Serious: Yes (Hospitalization)
  Sender: FDA-Public Use
  Company Number: 2013350

PATIENT
  Age: 48 Year
  Sex: Female

DRUGS (2)
  1. OXALIPLATIN [Suspect]
     Indication: PSEUDOMYXOMA PERITONEI
     Route: 033
  2. LEUCOVORIN/00566701 [Concomitant]

REACTIONS (5)
  - Hypotension [None]
  - Thrombocytopenia [None]
  - Anaemia [None]
  - Histiocytosis haematophagic [None]
  - Intra-abdominal haemorrhage [None]
